FAERS Safety Report 4369840-1 (Version None)
Quarter: 2004Q2

REPORT INFORMATION
  Report Type: 
  Country: None (occurrence: None)
  Receive Date: 20040603
  Receipt Date: 20040423
  Transmission Date: 20050107
  Serious: Yes (Life-Threatening, Hospitalization)
  Sender: FDA-Public Use
  Company Number: JP-MERCK-0404USA02264

PATIENT
  Age: 32 Year
  Sex: Male

DRUGS (10)
  1. [THERAPY UNSPECIFIED] [Concomitant]
     Indication: PHARYNGITIS
     Route: 065
     Dates: start: 20040412, end: 20040414
  2. CHONDROITIN SULFATE SODIUM AND SODIUM SALICYLATE [Suspect]
     Indication: NEURALGIA
     Route: 042
     Dates: start: 20040414, end: 20040414
  3. PRIMAXIN [Suspect]
     Indication: BRONCHITIS ACUTE
     Route: 042
     Dates: start: 20040414, end: 20040414
  4. FLUTICASONE PROPIONATE [Concomitant]
     Indication: ASTHMA
     Route: 065
     Dates: start: 20040406, end: 20040414
  5. IBUPROFEN [Concomitant]
     Indication: PYREXIA
     Route: 065
     Dates: start: 20040414
  6. SINGULAIR [Concomitant]
     Indication: ASTHMA
     Route: 048
     Dates: start: 20040406, end: 20040414
  7. SALMETEROL XINAFOATE [Concomitant]
     Indication: ASTHMA
     Route: 065
     Dates: start: 20040406, end: 20040414
  8. KETEK [Concomitant]
     Indication: PHARYNGITIS
     Route: 065
     Dates: start: 20040412, end: 20040414
  9. THEOPHYLLINE [Concomitant]
     Indication: ASTHMA
     Route: 065
     Dates: start: 20040406, end: 20040414
  10. TULOBUTEROL [Concomitant]
     Indication: ASTHMA
     Route: 065
     Dates: start: 20040406, end: 20040414

REACTIONS (3)
  - ANAPHYLACTIC SHOCK [None]
  - ASTHMA [None]
  - DRUG INTERACTION [None]
